FAERS Safety Report 11908984 (Version 1)
Quarter: 2016Q1

REPORT INFORMATION
  Report Type: Not Available
  Country: DE (occurrence: BR)
  Receive Date: 20160111
  Receipt Date: 20160111
  Transmission Date: 20160526
  Serious: Yes (Other)
  Sender: FDA-Public Use
  Company Number: DE-ANIPHARMA-2016-BR-000001

PATIENT
  Age: 63 Year
  Sex: Male
  Weight: 85 kg

DRUGS (7)
  1. ZYLORIC [Concomitant]
     Active Substance: ALLOPURINOL
  2. VALDOXAN [Concomitant]
     Active Substance: AGOMELATINE
  3. GLIFAGE XR [Concomitant]
     Active Substance: METFORMIN HYDROCHLORIDE
  4. NATRILIX SR 1.5MG [Concomitant]
  5. FLUVOXAMINE (NON-SPECIFIC) [Suspect]
     Active Substance: FLUVOXAMINE
     Dosage: 50MG DAILY
     Route: 048
  6. ZESTRIL [Concomitant]
     Active Substance: LISINOPRIL
  7. CRESTOR 20MG [Concomitant]

REACTIONS (6)
  - Speech disorder [Unknown]
  - Hypertensive crisis [Unknown]
  - Dizziness [Unknown]
  - Mental impairment [Unknown]
  - Lethargy [Unknown]
  - Confusional state [Unknown]

NARRATIVE: CASE EVENT DATE: 201512
